FAERS Safety Report 11476688 (Version 1)
Quarter: 2015Q3

REPORT INFORMATION
  Report Type: Other
  Country: CH (occurrence: CH)
  Receive Date: 20150909
  Receipt Date: 20150909
  Transmission Date: 20151125
  Serious: Yes (Life-Threatening, Hospitalization)
  Sender: FDA-Public Use
  Company Number: CH-LUPIN PHARMACEUTICALS INC.-2015-02728

PATIENT
  Age: 66 Year
  Sex: Male

DRUGS (1)
  1. SIMVASTATIN. [Suspect]
     Active Substance: SIMVASTATIN
     Indication: CHRONIC OBSTRUCTIVE PULMONARY DISEASE
     Dosage: 40 MG
     Route: 065

REACTIONS (4)
  - Acute kidney injury [Unknown]
  - Rhabdomyolysis [Unknown]
  - Dyskinesia [Unknown]
  - Quadriparesis [Unknown]
